FAERS Safety Report 5167344-X (Version None)
Quarter: 2006Q4

REPORT INFORMATION
  Report Type: 
  Country: None (occurrence: None)
  Receive Date: 20061207
  Receipt Date: 20061011
  Transmission Date: 20070319
  Serious: Yes (Hospitalization)
  Sender: FDA-Public Use
  Company Number: GB-ABBOTT-06P-167-0346743-00

PATIENT
  Sex: Female
  Weight: 130 kg

DRUGS (6)
  1. HUMIRA [Suspect]
     Indication: RHEUMATOID ARTHRITIS
     Route: 058
     Dates: start: 20061004, end: 20061009
  2. CETIRIZINE HCL [Concomitant]
     Indication: DRUG USE FOR UNKNOWN INDICATION
     Route: 048
  3. TEMAZEPAM [Concomitant]
     Indication: PAIN
     Route: 048
  4. DICLOFENAC SODIUM [Concomitant]
     Indication: PAIN
     Route: 048
     Dates: start: 20060628
  5. TRAMADOL HCL [Concomitant]
     Indication: PAIN
     Route: 048
  6. BIOPROLOL [Concomitant]
     Indication: HYPERTENSION
     Route: 048

REACTIONS (1)
  - CELLULITIS [None]
